FAERS Safety Report 9338843 (Version 1)
Quarter: 2013Q2

REPORT INFORMATION
  Report Type: Spontaneous
  Country: CR (occurrence: CR)
  Receive Date: 20130610
  Receipt Date: 20130610
  Transmission Date: 20140414
  Serious: Yes (Life-Threatening, Hospitalization)
  Sender: FDA-Public Use
  Company Number: CR-ELI_LILLY_AND_COMPANY-CR201305009628

PATIENT
  Age: 37 Year
  Sex: Female

DRUGS (1)
  1. OLANZAPINE [Suspect]
     Dosage: UNK, UNKNOWN

REACTIONS (3)
  - Respiratory arrest [Unknown]
  - Delirium [Unknown]
  - Somnolence [Unknown]
